FAERS Safety Report 9407320 (Version 2)
Quarter: 2013Q3

REPORT INFORMATION
  Report Type: Spontaneous
  Country: FR (occurrence: FR)
  Receive Date: 20130718
  Receipt Date: 20130725
  Transmission Date: 20140515
  Serious: Yes (Other)
  Sender: FDA-Public Use
  Company Number: FR-PFIZER INC-2013205736

PATIENT
  Age: 42 Year
  Sex: Male

DRUGS (4)
  1. DOSTINEX [Suspect]
     Indication: HYPERPROLACTINAEMIA
     Dosage: 0.5 MG, WEEKLY
     Route: 048
     Dates: start: 20120620, end: 201305
  2. HYDROCORTISONE [Concomitant]
     Dosage: 3 TABLETS DAILY
     Dates: start: 1993
  3. LEVOTHYROX [Concomitant]
     Dosage: UNK
     Dates: start: 1993
  4. ANDROTARDYL [Concomitant]
     Dosage: UNK
     Dates: start: 1993

REACTIONS (6)
  - Abnormal behaviour [Not Recovered/Not Resolved]
  - Psychomotor hyperactivity [Not Recovered/Not Resolved]
  - Pathological gambling [Not Recovered/Not Resolved]
  - Weight decreased [Not Recovered/Not Resolved]
  - Libido increased [Not Recovered/Not Resolved]
  - Disinhibition [Not Recovered/Not Resolved]
